FAERS Safety Report 16371829 (Version 1)
Quarter: 2019Q3

REPORT INFORMATION
  Report Type: Spontaneous
  Country: US (occurrence: US)
  Receive Date: 20190529
  Receipt Date: 20190529
  Transmission Date: 20191004
  Serious: Yes (Hospitalization)
  Sender: FDA-Public Use
  Company Number: None

PATIENT
  Age: 75 Year
  Sex: Male

DRUGS (5)
  1. NOVOLOG [Concomitant]
     Active Substance: INSULIN ASPART
  2. TACROLIMUS. [Suspect]
     Active Substance: TACROLIMUS
     Indication: TRANSPLANT
     Route: 048
     Dates: start: 20140408
  3. CENTRUM [Concomitant]
     Active Substance: VITAMINS
  4. VIT D [Concomitant]
     Active Substance: VITAMIN D NOS
  5. SIROLIMUS. [Suspect]
     Active Substance: SIROLIMUS
     Indication: TRANSPLANT
     Dosage: ?          OTHER FREQUENCY:QOD;?
     Route: 048
     Dates: start: 20151124

REACTIONS (4)
  - Pneumonia [None]
  - Influenza [None]
  - Renal failure [None]
  - Therapy cessation [None]
